FAERS Safety Report 7701250-9 (Version None)
Quarter: 2011Q3

REPORT INFORMATION
  Report Type: 
  Country: None (occurrence: None)
  Receive Date: 20110822
  Receipt Date: 20110812
  Transmission Date: 20111222
  Serious: Yes (Other)
  Sender: FDA-Public Use
  Company Number: US-GLAXOSMITHKLINE-A0941740A

PATIENT
  Age: 59 Year
  Sex: Male

DRUGS (5)
  1. LITHIUM CARBONATE [Suspect]
     Indication: BIPOLAR DISORDER
     Dosage: 900MG PER DAY
     Route: 048
     Dates: start: 19850101, end: 20050101
  2. NARDIL [Suspect]
     Indication: BIPOLAR DISORDER
     Dosage: 15MG THREE TIMES PER DAY
     Route: 048
     Dates: start: 19850101
  3. SELEGILINE [Concomitant]
     Indication: GLAUCOMA
     Dosage: 1DROP PER DAY
     Route: 047
     Dates: end: 20060701
  4. LAMICTAL [Suspect]
     Indication: BIPOLAR DISORDER
     Dosage: 200MGD PER DAY
     Route: 048
     Dates: start: 20050701, end: 20060101
  5. SYNTHROID [Concomitant]
     Indication: GLAUCOMA
     Dosage: 1DROP PER DAY
     Route: 047

REACTIONS (2)
  - GLAUCOMA [None]
  - DRUG INEFFECTIVE [None]
